FAERS Safety Report 16468217 (Version 1)
Quarter: 2019Q2

REPORT INFORMATION
  Report Type: Report from Study
  Country: CN (occurrence: CN)
  Receive Date: 20190624
  Receipt Date: 20190624
  Transmission Date: 20190711
  Serious: Yes (Other)
  Sender: FDA-Public Use
  Company Number: CN-ROCHE-2338995

PATIENT
  Sex: Female

DRUGS (3)
  1. CAPECITABINE. [Suspect]
     Active Substance: CAPECITABINE
     Indication: BREAST CANCER METASTATIC
     Dosage: DAY1 TO DAY14
     Route: 048
  2. DOCETAXEL. [Suspect]
     Active Substance: DOCETAXEL
     Indication: BREAST CANCER METASTATIC
     Dosage: DAY1
     Route: 041
  3. DEXAMETHASONE. [Concomitant]
     Active Substance: DEXAMETHASONE
     Dosage: 6-12 TABLETS
     Route: 048

REACTIONS (11)
  - Alanine aminotransferase abnormal [Unknown]
  - Alopecia [Unknown]
  - Aspartate aminotransferase abnormal [Unknown]
  - Neurotoxicity [Unknown]
  - Oral disorder [Unknown]
  - Granulocytopenia [Unknown]
  - Palmar-plantar erythrodysaesthesia syndrome [Unknown]
  - Diarrhoea [Unknown]
  - Gastrointestinal disorder [Unknown]
  - Thrombocytopenia [Unknown]
  - Haemoglobin decreased [Unknown]
